FAERS Safety Report 7230583 (Version 2)
Quarter: 2012Q4

REPORT INFORMATION
  Report Type: Report from Study
  Country: DK (occurrence: DK)
  Receive Date: 20091225
  Receipt Date: 20120920
  Transmission Date: 20130627
  Serious: Yes (Other)
  Sender: FDA-Public Use
  Company Number: DK-ELI_LILLY_AND_COMPANY-DK200912003664

PATIENT
  Age: 59 None
  Sex: Female

DRUGS (5)
  1. TERIPARATIDE [Suspect]
     Indication: OSTEOPOROSIS
     Dosage: 20 ug, qd
     Route: 065
     Dates: start: 20080219, end: 200808
  2. SPIRON [Concomitant]
     Indication: LIVER DISORDER
     Dosage: 300 mg, 2/D
     Route: 065
  3. FURIX [Concomitant]
     Indication: LIVER DISORDER
     Dosage: 150 mg, 2/D
     Route: 065
  4. PROPAL [Concomitant]
     Indication: CARDIAC DISORDER
     Dosage: UNK, unknown
     Route: 065
  5. CONTALGIN [Concomitant]
     Indication: PAIN
     Dosage: 30 mg, 2/D
     Route: 065

REACTIONS (1)
  - Breast cancer [Unknown]
